FAERS Safety Report 10697312 (Version 1)
Quarter: 2015Q1

REPORT INFORMATION
  Report Type: Spontaneous
  Country: US (occurrence: None)
  Receive Date: 20150106
  Receipt Date: 20150106
  Transmission Date: 20150721
  Serious: Yes (Other)
  Sender: FDA-Public Use
  Company Number: 2014SEB00086

PATIENT
  Age: 46 Year
  Sex: Female

DRUGS (9)
  1. KLONOPIN [Suspect]
     Active Substance: CLONAZEPAM
  2. CALCITONIN-SALMON [Suspect]
     Active Substance: CALCITONIN SALMON
  3. LASIX [Suspect]
     Active Substance: FUROSEMIDE
  4. DILAUDID [Suspect]
     Active Substance: HYDROMORPHONE HYDROCHLORIDE
  5. LIORESAL [Suspect]
     Active Substance: BACLOFEN
     Indication: MUSCLE SPASTICITY
     Dosage: 121.1 MG, 1X/DAY, INTRATHECAL ?
     Route: 037
     Dates: start: 20140805
  6. IMURAN [Suspect]
     Active Substance: AZATHIOPRINE
  7. CYMBALTA [Suspect]
     Active Substance: DULOXETINE HYDROCHLORIDE
  8. DYAZIDE [Suspect]
     Active Substance: HYDROCHLOROTHIAZIDE\TRIAMTERENE
  9. TEGRETOL [Suspect]
     Active Substance: CARBAMAZEPINE
     Route: 048

REACTIONS (4)
  - Osteoporosis [None]
  - Foot fracture [None]
  - Pain in extremity [None]
  - Stress fracture [None]
